FAERS Safety Report 5152950-9 (Version None)
Quarter: 2006Q4

REPORT INFORMATION
  Report Type: 
  Country: None (occurrence: None)
  Receive Date: 20061114
  Receipt Date: 20061114
  Transmission Date: 20070319
  Serious: Yes (Hospitalization)
  Sender: FDA-Public Use
  Company Number: None

PATIENT
  Age: 58 Year
  Sex: Male
  Weight: 85.5 kg

DRUGS (11)
  1. WARFARIN SODIUM [Suspect]
     Indication: ATRIAL FIBRILLATION
     Dosage: 5 MG DAILY PO
     Route: 048
  2. CRESTOR [Suspect]
     Indication: HYPERLIPIDAEMIA
     Dosage: 20 MG AT BEDTIME PO (LESS THAN 1 YEAR)
     Route: 048
  3. ASPIRIN [Concomitant]
  4. DIGOXIN [Concomitant]
  5. ADVAIR DISKUS 100/50 [Concomitant]
  6. FUROSEMIDE [Concomitant]
  7. IMDUR [Concomitant]
  8. METFORMIN [Concomitant]
  9. METOPROLOL SUCCINATE [Concomitant]
  10. SPIRIVA [Concomitant]
  11. PREDNISONE TAPER [Concomitant]

REACTIONS (4)
  - DRUG INTERACTION [None]
  - HAEMATURIA [None]
  - INTERNATIONAL NORMALISED RATIO INCREASED [None]
  - PNEUMONIA [None]
